FAERS Safety Report 9444933 (Version 2)
Quarter: 2013Q3

REPORT INFORMATION
  Report Type: Spontaneous
  Country: FR (occurrence: None)
  Receive Date: 20130806
  Receipt Date: 20130808
  Transmission Date: 20140515
  Serious: Yes (Other)
  Sender: FDA-Public Use
  Company Number: 2013037051

PATIENT
  Age: 3 Month
  Sex: 0

DRUGS (1)
  1. TEGELINE [Suspect]
     Indication: KAWASAKI^S DISEASE
     Dosage: 1000 MG/KG TOTAL

REACTIONS (4)
  - Drug ineffective for unapproved indication [None]
  - Meningitis aseptic [None]
  - Coronary artery aneurysm [None]
  - Inflammation [None]
